FAERS Safety Report 8337730-5 (Version None)
Quarter: 2012Q2

REPORT INFORMATION
  Report Type: 
  Country: None (occurrence: None)
  Receive Date: 20120504
  Receipt Date: 20120426
  Transmission Date: 20120825
  Serious: Yes (Life-Threatening, Hospitalization)
  Sender: FDA-Public Use
  Company Number: US-JNJFOC-20110902986

PATIENT
  Sex: Male
  Weight: 16.4 kg

DRUGS (4)
  1. TYLENOL (CAPLET) [Suspect]
     Indication: PYREXIA
     Dosage: 2 TABLESPOONS 3 TIMES PER DAY FOR 2 DAYS IN A ROW
     Dates: start: 20090901
  2. TYLENOL (CAPLET) [Suspect]
     Indication: ANALGESIC THERAPY
     Dosage: 2 TABLESPOONS 3 TIMES PER DAY FOR 2 DAYS IN A ROW
     Dates: start: 20090901
  3. GAVISCON [Suspect]
     Indication: ABDOMINAL DISCOMFORT
     Dates: start: 20090901
  4. MOTRIN [Suspect]
     Indication: PYREXIA
     Dates: start: 20090901

REACTIONS (2)
  - ACUTE HEPATIC FAILURE [None]
  - INCORRECT DOSE ADMINISTERED [None]
